FAERS Safety Report 15564750 (Version 2)
Quarter: 2019Q1

REPORT INFORMATION
  Report Type: Spontaneous
  Country: US (occurrence: US)
  Receive Date: 20181030
  Receipt Date: 20190117
  Transmission Date: 20190417
  Serious: No
  Sender: FDA-Public Use
  Company Number: US-PFIZER INC-2018438411

PATIENT
  Age: 7 Year
  Sex: Female

DRUGS (3)
  1. EUCRISA [Suspect]
     Active Substance: CRISABOROLE
     Indication: ECZEMA
     Dosage: UNK, 2X/DAY (TO APPLY ON THE AFFECTED AREA TWICE A DAY)
     Dates: start: 201809
  2. COCONUT OIL [Concomitant]
     Active Substance: COCONUT OIL
     Indication: DRY SKIN PROPHYLAXIS
     Dosage: UNK, 3X/DAY (APPLIED TO SKIN THREE TIMES A DAY)
     Dates: start: 201806
  3. EUCRISA [Suspect]
     Active Substance: CRISABOROLE
     Dosage: UNK, 2% APPLIED ON SKIN
     Dates: start: 201810, end: 201810

REACTIONS (3)
  - Condition aggravated [Unknown]
  - Burning sensation [Unknown]
  - Drug hypersensitivity [Recovered/Resolved]

NARRATIVE: CASE EVENT DATE: 201810
